FAERS Safety Report 23379481 (Version 1)
Quarter: 2024Q1

REPORT INFORMATION
  Report Type: Spontaneous
  Country: IT (occurrence: IT)
  Receive Date: 20240108
  Receipt Date: 20240108
  Transmission Date: 20240410
  Serious: Yes (Death)
  Sender: FDA-Public Use
  Company Number: None

PATIENT
  Age: 92 Year
  Sex: Female
  Weight: 40 kg

DRUGS (2)
  1. APIXABAN [Suspect]
     Active Substance: APIXABAN
     Indication: Atrial fibrillation
     Dosage: 2.5 MILLIGRAM, BID (2.5 MG 2 TIMES A DAY)
     Route: 048
  2. KETOROLAC TROMETHAMINE [Suspect]
     Active Substance: KETOROLAC TROMETHAMINE
     Indication: Arthralgia
     Dosage: 10 DROP (AS NEEDED, TAKEN DAILY FOR ABOUT A WEEK)
     Route: 048
     Dates: start: 202312

REACTIONS (1)
  - Haemorrhagic erosive gastritis [Fatal]

NARRATIVE: CASE EVENT DATE: 20231215
